FAERS Safety Report 7893383-1 (Version None)
Quarter: 2011Q4

REPORT INFORMATION
  Report Type: 
  Country: None (occurrence: None)
  Receive Date: 20111104
  Receipt Date: 20111021
  Transmission Date: 20120403
  Serious: Yes (Death, Other)
  Sender: FDA-Public Use
  Company Number: GB-ROCHE-1006736

PATIENT
  Age: 74 Year
  Sex: Male
  Weight: 87.8 kg

DRUGS (2)
  1. ACTIVASE [Suspect]
     Indication: CEREBROVASCULAR ACCIDENT
     Route: 042
     Dates: start: 20110809, end: 20110809
  2. ACTIVASE [Suspect]
     Indication: THROMBOLYSIS

REACTIONS (6)
  - BRAIN MIDLINE SHIFT [None]
  - OVERDOSE [None]
  - CONVULSION [None]
  - HAEMORRHAGE [None]
  - BRAIN OEDEMA [None]
  - CEREBRAL HAEMORRHAGE [None]
